FAERS Safety Report 6425676-9 (Version None)
Quarter: 2009Q4

REPORT INFORMATION
  Report Type: 
  Country: None (occurrence: None)
  Receive Date: 20091029
  Receipt Date: 20091019
  Transmission Date: 20100525
  Serious: Yes (Other)
  Sender: FDA-Public Use
  Company Number: 232144J09USA

PATIENT
  Age: 34 Year
  Sex: Female

DRUGS (4)
  1. REBIF [Suspect]
     Indication: MULTIPLE SCLEROSIS
     Dosage: 44 MCG, 3 IN 1 WEEKS, SUBCUTANEOUS
     Route: 058
     Dates: start: 20060920
  2. RAMIPRIL [Concomitant]
  3. FUROSEMIDE [Concomitant]
  4. CARVEDILOL [Concomitant]

REACTIONS (3)
  - AMNESIA [None]
  - EPILEPSY [None]
  - FALL [None]
